FAERS Safety Report 13717252 (Version 4)
Quarter: 2017Q3

REPORT INFORMATION
  Report Type: Spontaneous
  Country: US (occurrence: US)
  Receive Date: 20170705
  Receipt Date: 20170718
  Transmission Date: 20171127
  Serious: Yes (Hospitalization, Other)
  Sender: FDA-Public Use
  Company Number: US-JNJFOC-20170701343

PATIENT
  Sex: Female
  Weight: 46.27 kg

DRUGS (2)
  1. STELARA [Suspect]
     Active Substance: USTEKINUMAB
     Indication: CROHN^S DISEASE
     Route: 058
     Dates: start: 2017
  2. STELARA [Suspect]
     Active Substance: USTEKINUMAB
     Indication: CROHN^S DISEASE
     Route: 058
     Dates: start: 201703

REACTIONS (5)
  - Appendicectomy [Recovered/Resolved]
  - Off label use [Unknown]
  - Crohn^s disease [Unknown]
  - Inappropriate schedule of drug administration [Unknown]
  - Product storage error [Unknown]

NARRATIVE: CASE EVENT DATE: 2017
